FAERS Safety Report 5264752-3 (Version None)
Quarter: 2007Q1

REPORT INFORMATION
  Report Type: 
  Country: None (occurrence: None)
  Receive Date: 20061124
  Receipt Date: 20051219
  Transmission Date: 20070707
  Serious: Yes (Hospitalization)
  Sender: FDA-Public Use
  Company Number: 2005AC01995

PATIENT
  Age: 58 Year
  Sex: Female

DRUGS (2)
  1. ATENOLOL [Suspect]
     Indication: HYPERTENSION
  2. MODAFINIL [Concomitant]

REACTIONS (1)
  - BRADYCARDIA [None]
